FAERS Safety Report 23288315 (Version 1)
Quarter: 2023Q4

REPORT INFORMATION
  Report Type: Spontaneous
  Country: US (occurrence: US)
  Receive Date: 20231212
  Receipt Date: 20231212
  Transmission Date: 20240110
  Serious: No
  Sender: FDA-Public Use
  Company Number: US-FERRINGPH-2023FE00931

PATIENT
  Age: 37 Year
  Sex: Female
  Weight: 72.562 kg

DRUGS (1)
  1. MENOPUR [Suspect]
     Active Substance: FOLLITROPIN\LUTEINIZING HORMONE
     Indication: Product used for unknown indication
     Dosage: UNK
     Route: 065
     Dates: start: 20230225

REACTIONS (1)
  - Reaction to excipient [Unknown]

NARRATIVE: CASE EVENT DATE: 20230201
